FAERS Safety Report 6393301-1 (Version None)
Quarter: 2009Q4

REPORT INFORMATION
  Report Type: 
  Country: None (occurrence: None)
  Receive Date: 20091008
  Receipt Date: 20090925
  Transmission Date: 20100525
  Serious: Yes (Hospitalization)
  Sender: FDA-Public Use
  Company Number: PHHY2009IE28793

PATIENT
  Sex: Male

DRUGS (4)
  1. CLOZARIL [Suspect]
     Indication: SCHIZOPHRENIA
     Dosage: 200 MG, BID
     Route: 048
     Dates: start: 20090216
  2. CLOZARIL [Suspect]
     Dosage: 28 X 100 MG TABLET
     Route: 048
     Dates: start: 20090701
  3. CLOZARIL [Suspect]
     Dosage: 200 MG, BID
     Route: 048
  4. ZOLPIDEM [Concomitant]
     Indication: SEDATION
     Dosage: 10 MG/DAY
     Route: 048
     Dates: start: 20090110

REACTIONS (7)
  - CHEST PAIN [None]
  - CONVULSION [None]
  - FALL [None]
  - LOSS OF CONSCIOUSNESS [None]
  - OVERDOSE [None]
  - PNEUMONIA ASPIRATION [None]
  - SALIVARY HYPERSECRETION [None]
